FAERS Safety Report 10577589 (Version 1)
Quarter: 2014Q4

REPORT INFORMATION
  Report Type: Spontaneous
  Country: IT (occurrence: IT)
  Receive Date: 20141111
  Receipt Date: 20141111
  Transmission Date: 20150529
  Serious: Yes (Hospitalization)
  Sender: FDA-Public Use
  Company Number: IT-ACTAVIS-2014-23974

PATIENT
  Age: 80 Year
  Sex: Female
  Weight: 55 kg

DRUGS (4)
  1. CONTRAMAL [Interacting]
     Active Substance: TRAMADOL HYDROCHLORIDE
     Indication: TENDONITIS
     Dosage: 80 MG, DAILY
     Route: 048
  2. ALPRAZOLAM (UNKNOWN) [Interacting]
     Active Substance: ALPRAZOLAM
     Dosage: 0.5 MG, DAILY
     Route: 048
  3. PROZIN                             /00011902/ [Interacting]
     Active Substance: CHLORPROMAZINE HYDROCHLORIDE
     Indication: DEPRESSION
     Dosage: 40 MG, DAILY
     Route: 048
  4. ALPRAZOLAM (UNKNOWN) [Suspect]
     Active Substance: ALPRAZOLAM
     Indication: DEPRESSION
     Dosage: 0.37 MG, DAILY
     Route: 048

REACTIONS (2)
  - Lethargy [Recovered/Resolved]
  - Drug interaction [Recovered/Resolved]

NARRATIVE: CASE EVENT DATE: 20140330
